FAERS Safety Report 6031307-2 (Version None)
Quarter: 2008Q4

REPORT INFORMATION
  Report Type: 
  Country: None (occurrence: None)
  Receive Date: 20081224
  Receipt Date: 20080813
  Transmission Date: 20090506
  Serious: No
  Sender: FDA-Public Use
  Company Number: US-CVT-080079

PATIENT
  Age: 70 Year
  Sex: Male

DRUGS (6)
  1. RANEXA [Suspect]
     Indication: DRUG USE FOR UNKNOWN INDICATION
     Dosage: 500 MG, BID, ORAL
     Route: 048
     Dates: start: 20080702, end: 20080716
  2. PLAVIX [Concomitant]
  3. ASPIRIN [Concomitant]
  4. NITRATE (NITRATE) [Concomitant]
  5. STATIN (STATIN) [Concomitant]
  6. BETA BLOCKING AGENTS [Concomitant]

REACTIONS (1)
  - RASH [None]
